FAERS Safety Report 5812214-4 (Version None)
Quarter: 2008Q3

REPORT INFORMATION
  Report Type: 
  Country: None (occurrence: None)
  Receive Date: 20080714
  Receipt Date: 20080704
  Transmission Date: 20090109
  Serious: Yes (Hospitalization)
  Sender: FDA-Public Use
  Company Number: 2008SP013508

PATIENT
  Age: 64 Year
  Sex: Female

DRUGS (1)
  1. PEGINTERFERON ALFA-2B (S-P) (PEGINTERFERON ALFA-2B) [Suspect]
     Indication: HEPATITIS C
     Dosage: 0.5MCG/KG; QW; SC
     Route: 058
     Dates: start: 20070725

REACTIONS (1)
  - PYELONEPHRITIS [None]
